FAERS Safety Report 16993333 (Version 6)
Quarter: 2021Q2

REPORT INFORMATION
  Report Type: Spontaneous
  Country: US (occurrence: US)
  Receive Date: 20191105
  Receipt Date: 20210505
  Transmission Date: 20210716
  Serious: Yes (Other)
  Sender: FDA-Public Use
  Company Number: US-PFIZER INC-2019475487

PATIENT
  Age: 72 Year
  Sex: Female
  Weight: 67.12 kg

DRUGS (5)
  1. PREMARIN [Suspect]
     Active Substance: ESTROGENS, CONJUGATED
     Dosage: A SMALL AMOUNT TO FINGERTIP AND APPLY TO VAGINA AREA TWO TO THREE TIMES A WEEK
     Route: 067
  2. POTASSIUM [Concomitant]
     Active Substance: POTASSIUM
     Dosage: UNK
  3. WARFARIN [Concomitant]
     Active Substance: WARFARIN
     Indication: CARDIAC PACEMAKER INSERTION
     Dosage: UNK
  4. PREMARIN [Suspect]
     Active Substance: ESTROGENS, CONJUGATED
     Indication: ATROPHIC VULVOVAGINITIS
     Dosage: A SMALL AMOUNT TO FINGERTIP AND APPLY TO VAGINA AREA ONCE DAILY IN THE EVENING
     Route: 067
  5. PREMARIN [Suspect]
     Active Substance: ESTROGENS, CONJUGATED
     Indication: FUNGAL INFECTION
     Dosage: 20 MG, 1X/DAY
     Route: 067
     Dates: start: 201506

REACTIONS (5)
  - Off label use [Unknown]
  - Incorrect route of product administration [Unknown]
  - Blood potassium decreased [Unknown]
  - Dyspnoea [Unknown]
  - Chest pain [Unknown]

NARRATIVE: CASE EVENT DATE: 201506
